FAERS Safety Report 7706897-1 (Version None)
Quarter: 2011Q3

REPORT INFORMATION
  Report Type: 
  Country: None (occurrence: None)
  Receive Date: 20110824
  Receipt Date: 20110614
  Transmission Date: 20111222
  Serious: Yes (Other)
  Sender: FDA-Public Use
  Company Number: US-GLAXOSMITHKLINE-A0931483A

PATIENT
  Age: 35 Year
  Sex: Female

DRUGS (2)
  1. PROAIR HFA [Concomitant]
  2. ADVAIR DISKUS 100/50 [Suspect]
     Indication: ASTHMA
     Dosage: 1PUFF TWICE PER DAY
     Route: 055

REACTIONS (4)
  - CHEST DISCOMFORT [None]
  - PARAESTHESIA ORAL [None]
  - PRODUCT QUALITY ISSUE [None]
  - ASTHMA [None]
